FAERS Safety Report 18832971 (Version 1)
Quarter: 2021Q1

REPORT INFORMATION
  Report Type: Spontaneous
  Country: US (occurrence: US)
  Receive Date: 20210203
  Receipt Date: 20210203
  Transmission Date: 20210419
  Serious: Yes (Hospitalization)
  Sender: FDA-Public Use
  Company Number: None

PATIENT
  Age: 56 Year
  Sex: Male

DRUGS (2)
  1. TICAGRELOR (TICAGRELOR 90MG TAB) [Suspect]
     Active Substance: TICAGRELOR
     Indication: CORONARY ARTERIAL STENT INSERTION
     Route: 048
     Dates: start: 20200520, end: 20200521
  2. TICAGRELOR (TICAGRELOR 90MG TAB) [Suspect]
     Active Substance: TICAGRELOR
     Indication: CATHETERISATION CARDIAC
     Route: 048
     Dates: start: 20200520, end: 20200521

REACTIONS (2)
  - Heart rate irregular [None]
  - Atrioventricular block second degree [None]

NARRATIVE: CASE EVENT DATE: 20200522
